FAERS Safety Report 8889463 (Version 1)
Quarter: 2012Q4

REPORT INFORMATION
  Report Type: Spontaneous
  Country: US (occurrence: None)
  Receive Date: 20121102
  Receipt Date: 20121102
  Transmission Date: 20130627
  Serious: Yes (Hospitalization)
  Sender: FDA-Public Use
  Company Number: None

PATIENT
  Sex: Female
  Weight: 87.1 kg

DRUGS (3)
  1. CARBOPLATIN [Suspect]
  2. FILGRASTIM [Suspect]
  3. PACLITAXEL (TAXOL) [Suspect]

REACTIONS (9)
  - Nausea [None]
  - Vomiting [None]
  - Decreased appetite [None]
  - Pyrexia [None]
  - Chills [None]
  - Performance status decreased [None]
  - Tachycardia [None]
  - Decreased appetite [None]
  - Ascites [None]
